FAERS Safety Report 25471354 (Version 3)
Quarter: 2025Q4

REPORT INFORMATION
  Report Type: Report from Study
  Country: US (occurrence: US)
  Receive Date: 20250624
  Receipt Date: 20251209
  Transmission Date: 20260118
  Serious: Yes (Life-Threatening, Hospitalization, Other)
  Sender: ABBVIE
  Company Number: US-ABBVIE-6337411

PATIENT
  Age: 64 Year
  Sex: Male

DRUGS (1)
  1. SKYRIZI [Suspect]
     Active Substance: RISANKIZUMAB-RZAA
     Indication: Psoriasis
     Route: 058
     Dates: start: 20230417

REACTIONS (7)
  - Staphylococcal sepsis [Recovered/Resolved]
  - Furuncle [Recovering/Resolving]
  - Spinal disorder [Recovering/Resolving]
  - Chest injury [Recovering/Resolving]
  - Intra-abdominal haematoma [Recovering/Resolving]
  - Road traffic accident [Recovering/Resolving]
  - Diabetes mellitus [Unknown]

NARRATIVE: CASE EVENT DATE: 20250101
